FAERS Safety Report 21433632 (Version 1)
Quarter: 2022Q4

REPORT INFORMATION
  Report Type: Other
  Country: ES (occurrence: ES)
  Receive Date: 20221010
  Receipt Date: 20221010
  Transmission Date: 20230113
  Serious: Yes (Hospitalization)
  Sender: FDA-Public Use
  Company Number: ES-DENTSPLY-2022SCDP000288

PATIENT
  Age: 39 Year
  Sex: Male
  Weight: 60 kg

DRUGS (1)
  1. MEPIVACAINE HYDROCHLORIDE [Suspect]
     Active Substance: MEPIVACAINE HYDROCHLORIDE
     Indication: Back pain
     Dosage: 20 MG/ML MEPIVACAINE B. BRAUN INJECTABLE SOLUTION, 1 AMPOULE OF 10 ML
     Dates: start: 20220913, end: 20220913

REACTIONS (2)
  - Dysarthria [None]
  - Dyskinesia [Recovered/Resolved]

NARRATIVE: CASE EVENT DATE: 20220913
